FAERS Safety Report 6041690-X (Version None)
Quarter: 2009Q1

REPORT INFORMATION
  Report Type: 
  Country: None (occurrence: None)
  Receive Date: 20090116
  Receipt Date: 20080320
  Transmission Date: 20090719
  Serious: Yes (Hospitalization, Other)
  Sender: FDA-Public Use
  Company Number: US-BRISTOL-MYERS SQUIBB COMPANY-14041990

PATIENT
  Age: 54 Year
  Sex: Male
  Weight: 118 kg

DRUGS (10)
  1. ABILIFY [Suspect]
     Indication: BIPOLAR DISORDER
     Dosage: DOSE WAS REDUCED TO 15MG DAILY
     Route: 048
     Dates: start: 20050101
  2. LOVAZA [Concomitant]
     Route: 048
  3. ASACOL [Concomitant]
  4. UROXATRAL [Concomitant]
  5. CABERGOLINE [Concomitant]
  6. HECTOROL [Concomitant]
  7. ALLOPURINOL [Concomitant]
  8. FOLIC ACID [Concomitant]
  9. ANDRODERM [Concomitant]
  10. PAXIL [Concomitant]

REACTIONS (6)
  - EJACULATION DISORDER [None]
  - ERECTILE DYSFUNCTION [None]
  - OVERDOSE [None]
  - PROSTATOMEGALY [None]
  - URINARY RETENTION [None]
  - URINARY TRACT INFECTION [None]
